FAERS Safety Report 15126618 (Version 2)
Quarter: 2018Q3

REPORT INFORMATION
  Report Type: Spontaneous
  Country: US (occurrence: US)
  Receive Date: 20180710
  Receipt Date: 20180802
  Transmission Date: 20181010
  Serious: Yes (Hospitalization)
  Sender: FDA-Public Use
  Company Number: US-PFIZER INC-2018266524

PATIENT
  Age: 55 Year
  Sex: Female

DRUGS (2)
  1. CHAPSTICK TOTAL HYDRATION [Suspect]
     Active Substance: COSMETICS
     Indication: LIP DRY
     Dosage: TOPICAL TO LIPS AS NEEDED SWIPE FROM LEFT TO RIGHT ON BOTTOM LIP AND REPEAT ON THE TOP LIP
     Route: 061
     Dates: end: 20180629
  2. CHAPSTICK TOTAL HYDRATION [Suspect]
     Active Substance: COSMETICS
     Indication: CHAPPED LIPS

REACTIONS (1)
  - Perineurial cyst [Not Recovered/Not Resolved]

NARRATIVE: CASE EVENT DATE: 201705
